FAERS Safety Report 16997516 (Version 2)
Quarter: 2020Q4

REPORT INFORMATION
  Report Type: Spontaneous
  Country: US (occurrence: US)
  Receive Date: 20191106
  Receipt Date: 20201111
  Transmission Date: 20210113
  Serious: Yes (Other)
  Sender: FDA-Public Use
  Company Number: US-STRIDES ARCOLAB LIMITED-2019SP007901

PATIENT
  Age: 37 Year
  Sex: Male

DRUGS (6)
  1. DULOXETINE. [Suspect]
     Active Substance: DULOXETINE
     Indication: MYELITIS TRANSVERSE
  2. PREGABALIN. [Suspect]
     Active Substance: PREGABALIN
     Indication: MYELITIS TRANSVERSE
     Dosage: 150 MILLIGRAM, BID, DOSE REDUCED
     Route: 065
  3. GABAPENTIN. [Suspect]
     Active Substance: GABAPENTIN
     Indication: MYELITIS TRANSVERSE
     Dosage: 300 MILLIGRAM, QID, DOSE REDUCED
     Route: 065
  4. DULOXETINE. [Suspect]
     Active Substance: DULOXETINE
     Indication: NEURALGIA
     Dosage: 60 MILLIGRAM DAILY
     Route: 065
  5. PREGABALIN. [Suspect]
     Active Substance: PREGABALIN
     Indication: NEURALGIA
     Dosage: 150 MILLIGRAM, TID
     Route: 065
  6. GABAPENTIN. [Suspect]
     Active Substance: GABAPENTIN
     Indication: NEURALGIA
     Dosage: 600 MILLIGRAM, QID
     Route: 065

REACTIONS (3)
  - Aphasia [Recovered/Resolved]
  - Treatment failure [Unknown]
  - Memory impairment [Recovered/Resolved]
